FAERS Safety Report 7689673-8 (Version None)
Quarter: 2011Q3

REPORT INFORMATION
  Report Type: 
  Country: None (occurrence: None)
  Receive Date: 20110817
  Receipt Date: 20110803
  Transmission Date: 20111222
  Serious: Yes (Other)
  Sender: FDA-Public Use
  Company Number: CA-ELI_LILLY_AND_COMPANY-CA201108001079

PATIENT
  Sex: Female

DRUGS (7)
  1. PROZAC [Concomitant]
  2. LORAZEPAM [Concomitant]
  3. TRAZODONE HCL [Concomitant]
  4. EFFEXOR [Concomitant]
  5. LOXAPINE HCL [Concomitant]
  6. ZYPREXA [Suspect]
     Indication: SCHIZOPHRENIA
     Dosage: 10 MG, UNKNOWN
  7. ZYPREXA ZYDIS [Suspect]
     Indication: SCHIZOPHRENIA
     Dosage: 10 MG, QD

REACTIONS (13)
  - PALPITATIONS [None]
  - BRONCHITIS [None]
  - WEIGHT INCREASED [None]
  - BLOOD CHOLESTEROL INCREASED [None]
  - MACULAR DEGENERATION [None]
  - GASTROINTESTINAL HAEMORRHAGE [None]
  - RECTAL HAEMORRHAGE [None]
  - OSTEOPENIA [None]
  - HEPATIC STEATOSIS [None]
  - IRON DEFICIENCY ANAEMIA [None]
  - CHEST PAIN [None]
  - LOW DENSITY LIPOPROTEIN INCREASED [None]
  - DIABETES MELLITUS [None]
